FAERS Safety Report 20315184 (Version 1)
Quarter: 2022Q1

REPORT INFORMATION
  Report Type: Report from Study
  Country: BE (occurrence: BE)
  Receive Date: 20220110
  Receipt Date: 20220110
  Transmission Date: 20220424
  Serious: Yes (Hospitalization)
  Sender: FDA-Public Use
  Company Number: BE-Merck Healthcare KGaA-9236614

PATIENT
  Age: 73 Year
  Sex: Male
  Weight: 76 kg

DRUGS (9)
  1. PACLITAXEL [Suspect]
     Active Substance: PACLITAXEL
     Indication: Bladder transitional cell carcinoma
     Dosage: 150 MG
     Route: 042
     Dates: start: 20210330, end: 20210330
  2. PACLITAXEL [Suspect]
     Active Substance: PACLITAXEL
     Dosage: 150 MG
     Route: 042
     Dates: start: 20210201
  3. AVELUMAB [Suspect]
     Active Substance: AVELUMAB
     Indication: Bladder transitional cell carcinoma
     Dosage: 730 MG, CYCLIC (EVERY 2 WEEK)
     Route: 042
     Dates: start: 20210330, end: 20210330
  4. AVELUMAB [Suspect]
     Active Substance: AVELUMAB
     Dosage: 730 MG, CYCLIC (EVERY 2 WEEK)
     Route: 042
     Dates: start: 20210201
  5. AUGMENTIN [Suspect]
     Active Substance: AMOXICILLIN\CLAVULANATE POTASSIUM
     Indication: Anal abscess
     Dosage: 875 MG, (1 IN 0.3 DAYS)
     Route: 048
     Dates: start: 20210315, end: 20210424
  6. GEMCITABINE HYDROCHLORIDE [Suspect]
     Active Substance: GEMCITABINE HYDROCHLORIDE
     Indication: Bladder transitional cell carcinoma
     Dosage: 1862 MG, CYCLIC  (EVERY 2 WEEK)
     Route: 042
     Dates: start: 20210201
  7. GEMCITABINE HYDROCHLORIDE [Suspect]
     Active Substance: GEMCITABINE HYDROCHLORIDE
     Dosage: 1862 MG, CYCLIC (EVERY 2 WEEK)
     Route: 042
     Dates: start: 20210330, end: 20210330
  8. TOZINAMERAN [Suspect]
     Active Substance: TOZINAMERAN
     Indication: COVID-19 immunisation
     Dosage: UNK (DOSE 1, SINGLE)
     Route: 058
     Dates: start: 20210323, end: 20210323
  9. TOZINAMERAN [Suspect]
     Active Substance: TOZINAMERAN
     Dosage: UNK (DOSE 2, SINGLE)
     Dates: start: 20210427, end: 20210427

REACTIONS (1)
  - Immune-mediated hepatitis [Recovered/Resolved]

NARRATIVE: CASE EVENT DATE: 20210426
